FAERS Safety Report 6678717-8 (Version None)
Quarter: 2010Q2

REPORT INFORMATION
  Report Type: 
  Country: None (occurrence: None)
  Receive Date: 20100413
  Receipt Date: 20100405
  Transmission Date: 20101027
  Serious: Yes (Hospitalization)
  Sender: FDA-Public Use
  Company Number: PHHY2010US21227

PATIENT
  Sex: Female

DRUGS (1)
  1. EXJADE [Suspect]
     Route: 048

REACTIONS (2)
  - PNEUMONIA [None]
  - TREATMENT NONCOMPLIANCE [None]
